FAERS Safety Report 8013569-5 (Version None)
Quarter: 2011Q4

REPORT INFORMATION
  Report Type: 
  Country: None (occurrence: None)
  Receive Date: 20111229
  Receipt Date: 20111220
  Transmission Date: 20120403
  Serious: Yes (Other)
  Sender: FDA-Public Use
  Company Number: US-BAXTER-2011BH039918

PATIENT
  Age: 46 Year
  Sex: Female

DRUGS (2)
  1. DIANEAL [Suspect]
     Indication: PERITONEAL DIALYSIS
     Route: 033
  2. DIANEAL [Suspect]
     Indication: PERITONEAL DIALYSIS
     Route: 033

REACTIONS (5)
  - ENDOCARDITIS [None]
  - SYSTEMIC LUPUS ERYTHEMATOSUS [None]
  - RENAL FAILURE CHRONIC [None]
  - CARDIAC VALVE DISEASE [None]
  - CONDITION AGGRAVATED [None]
